FAERS Safety Report 9070930 (Version 1)
Quarter: 2013Q1

REPORT INFORMATION
  Report Type: Spontaneous
  Country: US (occurrence: US)
  Receive Date: 20130129
  Receipt Date: 20130129
  Transmission Date: 20140127
  Serious: Yes (Life-Threatening)
  Sender: FDA-Public Use
  Company Number: US-GLAXOSMITHKLINE-A1009982A

PATIENT
  Age: 68 Year
  Sex: Male
  Weight: 118.2 kg

DRUGS (1)
  1. ADVAIR [Suspect]
     Indication: CHRONIC OBSTRUCTIVE PULMONARY DISEASE
     Dosage: 2PUFF TWICE PER DAY
     Route: 055

REACTIONS (3)
  - Aphasia [Unknown]
  - Dysphonia [Unknown]
  - Dysphagia [Unknown]
